FAERS Safety Report 4450023-1 (Version None)
Quarter: 2004Q3

REPORT INFORMATION
  Report Type: 
  Country: None (occurrence: None)
  Receive Date: 20040910
  Receipt Date: 20040624
  Transmission Date: 20050211
  Serious: Yes (Other)
  Sender: FDA-Public Use
  Company Number: S04-USA-03699-01

PATIENT

DRUGS (2)
  1. LEXAPRO [Suspect]
  2. CELEXA [Suspect]

REACTIONS (1)
  - MANIA [None]
